FAERS Safety Report 13718214 (Version 1)
Quarter: 2017Q3

REPORT INFORMATION
  Report Type: Spontaneous
  Country: US (occurrence: US)
  Receive Date: 20170705
  Receipt Date: 20170705
  Transmission Date: 20171127
  Serious: Yes (Other)
  Sender: FDA-Public Use
  Company Number: US-BAXTER-2017BAX026745

PATIENT
  Age: 58 Year
  Sex: Female
  Weight: 58.97 kg

DRUGS (8)
  1. IBRANCE [Suspect]
     Active Substance: PALBOCICLIB
     Dosage: ON FOR 2 WEEKS AND OFF FOR 2 WEEKS
     Route: 048
     Dates: end: 20170608
  2. LETROZOLE. [Suspect]
     Active Substance: LETROZOLE
     Indication: BREAST CANCER METASTATIC
     Route: 048
     Dates: start: 201505, end: 20170608
  3. IBRANCE [Suspect]
     Active Substance: PALBOCICLIB
     Indication: BREAST CANCER STAGE IV
     Dosage: DOSE REDUCED
     Route: 048
  4. TAMOXIFEN [Suspect]
     Active Substance: TAMOXIFEN
     Indication: PRODUCT USED FOR UNKNOWN INDICATION
     Dosage: 23 YEARS AGO
     Route: 065
  5. IBRANCE [Suspect]
     Active Substance: PALBOCICLIB
     Indication: BREAST CANCER METASTATIC
     Route: 048
     Dates: start: 201505
  6. CYCLOPHOSPHAMIDE FOR INJECTION, USP [Suspect]
     Active Substance: CYCLOPHOSPHAMIDE
     Indication: PRODUCT USED FOR UNKNOWN INDICATION
     Dosage: STARTED 2.5 YEARS AGO
     Route: 065
  7. TAMOXIFEN [Suspect]
     Active Substance: TAMOXIFEN
     Dosage: NEW VERSION
     Route: 065
  8. LETROZOLE. [Suspect]
     Active Substance: LETROZOLE
     Indication: BREAST CANCER STAGE IV

REACTIONS (8)
  - Anaemia [Unknown]
  - Blister [Unknown]
  - Metastases to spine [Not Recovered/Not Resolved]
  - Weight increased [Unknown]
  - White blood cell count decreased [Unknown]
  - Fatigue [Unknown]
  - Adverse event [Unknown]
  - Alopecia [Unknown]

NARRATIVE: CASE EVENT DATE: 20170608
